FAERS Safety Report 8212834-6 (Version None)
Quarter: 2012Q1

REPORT INFORMATION
  Report Type: 
  Country: None (occurrence: None)
  Receive Date: 20120315
  Receipt Date: 20120308
  Transmission Date: 20120608
  Serious: Yes (Death, Hospitalization)
  Sender: FDA-Public Use
  Company Number: PHHO2011US13295

PATIENT
  Sex: Male
  Weight: 87.09 kg

DRUGS (4)
  1. PREDNISONE TAB [Concomitant]
     Indication: IMMUNOSUPPRESSION
     Dosage: 5 MG, QD
     Route: 048
     Dates: start: 20110118, end: 20110725
  2. MYCOPHENOLATE MOFETIL [Suspect]
     Indication: RENAL TRANSPLANT
     Dosage: 1 G, BID
     Route: 048
     Dates: start: 20101120, end: 20110804
  3. TACROLIMUS [Suspect]
     Dosage: 2 MG, BID
     Route: 048
     Dates: start: 20110215
  4. PREDNISONE TAB [Concomitant]
     Dosage: 40 MG, QD
     Route: 048
     Dates: start: 20110726

REACTIONS (2)
  - GOUT [None]
  - CARDIAC ARREST [None]
